FAERS Safety Report 8967594 (Version 1)
Quarter: 2012Q4

REPORT INFORMATION
  Report Type: 
  Country: US (occurrence: US)
  Receive Date: 20121214
  Receipt Date: 20121214
  Transmission Date: 20130627
  Serious: No
  Sender: FDA-Public Use
  Company Number: US-009507513-1212USA005036

PATIENT
  Sex: Male

DRUGS (4)
  1. SINGULAIR [Suspect]
     Indication: HYPERSENSITIVITY
     Dosage: UNK
  2. CLARITIN [Concomitant]
     Indication: ASTHMA
     Dosage: A few
  3. ALBUTEROL [Concomitant]
     Indication: ASTHMA
  4. FLONASE [Concomitant]
     Indication: ASTHMA

REACTIONS (1)
  - Drug ineffective [Unknown]
